FAERS Safety Report 10855155 (Version 1)
Quarter: 2015Q1

REPORT INFORMATION
  Report Type: Spontaneous
  Country: TR (occurrence: None)
  Receive Date: 20150218
  Receipt Date: 20150218
  Transmission Date: 20150721
  Serious: Yes (Hospitalization, Other)
  Sender: FDA-Public Use
  Company Number: TR-ZYDUS-006724

PATIENT
  Age: 6 Year
  Sex: Male

DRUGS (1)
  1. VALPROIC ACID (VALPROIC ACID) [Suspect]
     Active Substance: VALPROIC ACID
     Indication: SEIZURE

REACTIONS (6)
  - Pancreatitis acute [None]
  - Coagulopathy [None]
  - Thrombocytopenia [None]
  - Multi-organ failure [None]
  - Renal impairment [None]
  - Hepatic function abnormal [None]
